FAERS Safety Report 8428819-0 (Version None)
Quarter: 2012Q2

REPORT INFORMATION
  Report Type: 
  Country: None (occurrence: None)
  Receive Date: 20120604
  Receipt Date: 20120521
  Transmission Date: 20120825
  Serious: Yes (Hospitalization, Other)
  Sender: FDA-Public Use
  Company Number: 2012MA006443

PATIENT
  Age: 55 Year
  Sex: Female

DRUGS (6)
  1. FLUOXETINE HYDROCHLORIDE [Suspect]
     Indication: DEPRESSION
     Dosage: 20 MG, PO
     Route: 048
     Dates: end: 20120301
  2. BENDOFLUMETHIAZIDE [Concomitant]
  3. VENLAFAXINE HYDROCHLORIDE [Suspect]
     Indication: DEPRESSION
     Dosage: 300 MG, PO
     Route: 048
  4. IRBESARTAN [Concomitant]
  5. METFORMIN [Concomitant]
  6. IBUPROFEN [Concomitant]

REACTIONS (2)
  - MENORRHAGIA [None]
  - ENDOMETRIAL HYPERPLASIA [None]
